FAERS Safety Report 19258312 (Version 1)
Quarter: 2021Q2

REPORT INFORMATION
  Report Type: Spontaneous
  Country: US (occurrence: US)
  Receive Date: 20210514
  Receipt Date: 20210514
  Transmission Date: 20210717
  Serious: Yes (Hospitalization)
  Sender: FDA-Public Use
  Company Number: US-MYLANLABS-2021M1028313

PATIENT
  Age: 60 Year
  Sex: Male
  Weight: 142.9 kg

DRUGS (1)
  1. EPINEPHRINE. [Suspect]
     Active Substance: EPINEPHRINE
     Indication: ALLERGY TO ARTHROPOD STING
     Dosage: HE INJECTED HIMSELF WITH HIS PRESCRIBED EPINEPHRINE AUTO?..
     Route: 051

REACTIONS (4)
  - Gas gangrene [Recovering/Resolving]
  - Clostridial infection [Recovering/Resolving]
  - Metabolic acidosis [Recovering/Resolving]
  - Acute kidney injury [Recovered/Resolved]
